FAERS Safety Report 9511813 (Version 1)
Quarter: 2013Q1

REPORT INFORMATION
  Report Type: Spontaneous
  Country: US (occurrence: None)
  Receive Date: 20130305
  Receipt Date: 20130305
  Transmission Date: 20140127
  Serious: Yes (Disabling)
  Sender: FDA-Public Use
  Company Number: 163-21880-12052236

PATIENT
  Age: 71 Year
  Sex: Female
  Weight: 64.64 kg

DRUGS (17)
  1. REVLIMID [Suspect]
     Indication: PLASMA CELL MYELOMA
     Dosage: 10 MG, 1 IN 1 D, PO
     Route: 048
     Dates: start: 20100610, end: 201011
  2. NEXIUM (ESOMEPRAZOLE) (UNKNOWN) [Concomitant]
  3. XANTEX (RANITIDINE HYDROCHLORIDE) (UNKNOWN) [Concomitant]
  4. METANX (METANX) (UNKNOWN) [Concomitant]
  5. VITAMIN D (ERGOCALCIFEROL) (UNKNOWN) [Concomitant]
  6. SINGULAIR [Concomitant]
  7. PROBIOTICS (PROBIOTICS) (UNKNOWN) [Concomitant]
  8. ALLEGRA D (ALLERGRA-D - SLOW RELEASE) (UNKNOWN) [Concomitant]
  9. ADVAIR (SERETIDE MITE) (UNKNOWN) [Concomitant]
  10. MVI (MVI) (UNKNOWN) [Concomitant]
  11. CLONIDINE (CLONIDINE) (UNKNOWN) [Concomitant]
  12. CARVEDILOL (CARVEDILOL) UNKNOWN [Concomitant]
  13. AVAPRO (IRBESARTAN) (UNKNOWN) [Concomitant]
  14. ASTERPRO (AZELASTINE HYDROCHLORIDE) (UNKNOWN) [Concomitant]
  15. ASA (ACETYLSALICYLIC ACID) (UNKNOWN) [Concomitant]
  16. AMLODIPINE (AMLODIPINE) (UNKNOWN) [Concomitant]
  17. CICLESONIDE (CICLESONIDE) (UNKNOWN) [Concomitant]

REACTIONS (1)
  - Monoclonal immunoglobulin present [None]
